FAERS Safety Report 10239622 (Version 2)
Quarter: 2015Q1

REPORT INFORMATION
  Report Type: Spontaneous
  Country: US (occurrence: US)
  Receive Date: 20140616
  Receipt Date: 20150105
  Transmission Date: 20150720
  Serious: Yes (Other)
  Sender: FDA-Public Use
  Company Number: US-GILEAD-2014-0105439

PATIENT
  Age: 63 Year
  Sex: Female

DRUGS (3)
  1. LETAIRIS [Suspect]
     Active Substance: AMBRISENTAN
     Indication: PULMONARY HYPERTENSION
     Dosage: 5 MG, QD
     Route: 065
     Dates: start: 20130528
  2. REVATIO [Concomitant]
     Active Substance: SILDENAFIL CITRATE
  3. LETAIRIS [Suspect]
     Active Substance: AMBRISENTAN
     Indication: SJOGREN^S SYNDROME

REACTIONS (7)
  - Dizziness [Unknown]
  - Speech disorder [Unknown]
  - Loss of consciousness [Unknown]
  - Fall [Unknown]
  - Hypotension [Unknown]
  - Dyspnoea [Unknown]
  - Presyncope [Unknown]

NARRATIVE: CASE EVENT DATE: 20140608
